FAERS Safety Report 6607796-9 (Version None)
Quarter: 2010Q1

REPORT INFORMATION
  Report Type: 
  Country: None (occurrence: None)
  Receive Date: 20100225
  Receipt Date: 20100225
  Transmission Date: 20100710
  Serious: No
  Sender: FDA-Public Use
  Company Number: None

PATIENT
  Age: 28 Year
  Sex: Male
  Weight: 90.7194 kg

DRUGS (1)
  1. POLY-VENT IR 561 POLY PHARM [Suspect]
     Indication: SINUSITIS
     Dosage: 1 TABLET EVERY SIX HOURS PO
     Route: 048
     Dates: start: 20100222, end: 20100223

REACTIONS (7)
  - ANXIETY [None]
  - DECREASED APPETITE [None]
  - DEPRESSION [None]
  - HALLUCINATION [None]
  - INSOMNIA [None]
  - PSYCHOMOTOR HYPERACTIVITY [None]
  - TREMOR [None]
